FAERS Safety Report 24669368 (Version 1)
Quarter: 2024Q4

REPORT INFORMATION
  Report Type: Spontaneous
  Country: US (occurrence: US)
  Receive Date: 20241127
  Receipt Date: 20241127
  Transmission Date: 20250114
  Serious: No
  Sender: Kenvue
  Company Number: US-KENVUE-20241033495

PATIENT
  Sex: Female

DRUGS (7)
  1. PEPCID [Suspect]
     Active Substance: FAMOTIDINE
     Indication: Hypersensitivity
     Dosage: 2 DOSAGE FORM, TWICE A DAY
     Route: 065
     Dates: start: 202403
  2. TARIMIN [Concomitant]
     Indication: Antiallergic therapy
     Route: 065
  3. Ejelan Tablet [Concomitant]
     Indication: Antiallergic therapy
     Route: 065
  4. Singuluca Tablet 10mg [Concomitant]
     Indication: Antiallergic therapy
     Route: 065
  5. Desone [Concomitant]
     Indication: Antiallergic therapy
     Route: 061
  6. Notek Tablet [Concomitant]
     Indication: Antiallergic therapy
     Route: 065
  7. EZN6 EVE [Concomitant]
     Indication: Antiallergic therapy
     Route: 061

REACTIONS (3)
  - Drug screen positive [Unknown]
  - Product use in unapproved indication [Unknown]
  - Overdose [Unknown]

NARRATIVE: CASE EVENT DATE: 20240101
